FAERS Safety Report 5626009-8 (Version None)
Quarter: 2008Q1

REPORT INFORMATION
  Report Type: 
  Country: None (occurrence: None)
  Receive Date: 20080214
  Receipt Date: 20080206
  Transmission Date: 20080703
  Serious: Yes (Death, Hospitalization, Other)
  Sender: FDA-Public Use
  Company Number: PHBS2008FR01938

PATIENT
  Age: 63 Year
  Sex: Male

DRUGS (6)
  1. BASILIXIMAB [Suspect]
     Indication: RENAL TRANSPLANT
     Dates: start: 20020801
  2. MYCOPHENOLATE MOFETIL [Suspect]
     Indication: RENAL TRANSPLANT
     Dosage: 2 G/D
     Dates: start: 20020801
  3. PREDNISONE TAB [Suspect]
     Indication: RENAL TRANSPLANT
     Dosage: 30 MG/D
     Dates: start: 20020801
  4. RAPAMYCIN [Suspect]
     Indication: RENAL TRANSPLANT
     Dosage: 8 MG/D
     Dates: start: 20031001
  5. RAPAMYCIN [Suspect]
     Dosage: 5 MG/D
  6. CYCLOSPORINE [Suspect]
     Indication: RENAL TRANSPLANT
     Dosage: 250 MG/D
     Route: 065
     Dates: start: 20020801, end: 20031001

REACTIONS (10)
  - ASCITES [None]
  - CARDIAC TAMPONADE [None]
  - CHRONIC ALLOGRAFT NEPHROPATHY [None]
  - COMPLICATIONS OF TRANSPLANTED KIDNEY [None]
  - KIDNEY TRANSPLANT REJECTION [None]
  - PERICARDITIS [None]
  - PLEURAL EFFUSION [None]
  - PRIMARY EFFUSION LYMPHOMA [None]
  - RENAL IMPAIRMENT [None]
  - SURGERY [None]
